FAERS Safety Report 13172015 (Version 2)
Quarter: 2017Q1

REPORT INFORMATION
  Report Type: Spontaneous
  Country: US (occurrence: US)
  Receive Date: 20170201
  Receipt Date: 20170322
  Transmission Date: 20170428
  Serious: No
  Sender: FDA-Public Use
  Company Number: US-PFIZER INC-2017042683

PATIENT
  Age: 46 Year
  Sex: Male
  Weight: 59 kg

DRUGS (2)
  1. TYLENOL EXTRA STRENGTH [Concomitant]
     Active Substance: ACETAMINOPHEN
     Indication: PAIN
     Dosage: 500 MG, UNK
  2. ADVIL [Suspect]
     Active Substance: IBUPROFEN
     Indication: PAIN
     Dosage: 200 MG, DAILY (TWO TO THREE TIMES)
     Route: 048
     Dates: start: 20170120

REACTIONS (6)
  - Vitamin B6 deficiency [Unknown]
  - Skin exfoliation [Not Recovered/Not Resolved]
  - Vitamin D decreased [Unknown]
  - Dry skin [Unknown]
  - Hypoacusis [Unknown]
  - Vitamin B12 deficiency [Unknown]

NARRATIVE: CASE EVENT DATE: 201701
